FAERS Safety Report 9016875 (Version 1)
Quarter: 2013Q1

REPORT INFORMATION
  Report Type: Spontaneous
  Country: GB (occurrence: GB)
  Receive Date: 20130117
  Receipt Date: 20130117
  Transmission Date: 20140127
  Serious: Yes (Other)
  Sender: FDA-Public Use
  Company Number: GB-B.I. PHARMACEUTICALS,INC./RIDGEFIELD-2012-UK-01961UK

PATIENT
  Age: 83 Year
  Sex: Female
  Weight: 72 kg

DRUGS (6)
  1. PRADAXA [Suspect]
     Indication: ATRIAL FIBRILLATION
     Dosage: 220 MG
     Route: 048
     Dates: start: 20121026
  2. CLOPIDOGREL [Concomitant]
     Indication: STENT PLACEMENT
     Dosage: 75 MG
     Route: 048
     Dates: start: 20121026
  3. BISOPROLOL [Concomitant]
     Indication: STENT PLACEMENT
     Dosage: 1.25 MG
     Route: 048
     Dates: start: 20121026
  4. AMIODARONE [Concomitant]
     Indication: ATRIAL FIBRILLATION
     Dosage: 200 MG
     Route: 048
     Dates: start: 20121026
  5. ATROVASTATIN [Concomitant]
     Indication: MYOCARDIAL ISCHAEMIA
     Dosage: 10 MG
     Route: 048
     Dates: start: 20121210
  6. ASPIRIN [Concomitant]
     Indication: STENT PLACEMENT
     Dosage: 75 MG
     Route: 048
     Dates: start: 20121026

REACTIONS (1)
  - Tremor [Not Recovered/Not Resolved]
